FAERS Safety Report 6299859-5 (Version None)
Quarter: 2009Q3

REPORT INFORMATION
  Report Type: 
  Country: None (occurrence: None)
  Receive Date: 20090806
  Receipt Date: 20090724
  Transmission Date: 20100115
  Serious: No
  Sender: FDA-Public Use
  Company Number: US-B.I. PHARMACEUTICALS,INC./RIDGEFIELD-2009-BP-08879BP

PATIENT
  Age: 46 Year
  Sex: Female

DRUGS (1)
  1. METACAM ORAL SUSPENSION [Suspect]
     Indication: ACCIDENTAL EXPOSURE
     Dosage: 1.5 RT
     Route: 061
     Dates: start: 20090707

REACTIONS (2)
  - ACCIDENTAL EXPOSURE [None]
  - PRURITUS [None]
